FAERS Safety Report 7752742-8 (Version None)
Quarter: 2011Q3

REPORT INFORMATION
  Report Type: 
  Country: None (occurrence: None)
  Receive Date: 20110915
  Receipt Date: 20110906
  Transmission Date: 20111222
  Serious: Yes (Hospitalization)
  Sender: FDA-Public Use
  Company Number: JP-ROCHE-801717

PATIENT
  Sex: Male
  Weight: 77 kg

DRUGS (9)
  1. TOCILIZUMAB [Suspect]
     Indication: RHEUMATOID ARTHRITIS
     Route: 058
     Dates: start: 20110218
  2. CELECOXIB [Concomitant]
     Dosage: NOTE: BEGINNING OF DOSAGE DAY:TRIAL PRENITIATION
     Route: 048
     Dates: end: 20110902
  3. ZOLPIDEM [Concomitant]
     Route: 048
  4. TOCILIZUMAB [Suspect]
     Route: 042
     Dates: start: 20100907
  5. PREDNISOLONE [Concomitant]
     Dosage: NOTE: BEGINNING OF DOSAGE DAY:TRIAL PRENITIATION
     Route: 048
  6. CRESTOR [Concomitant]
     Dosage: NOTE: BEGINNING OF DOSAGE DAY:TRIAL PRENITIATION
     Route: 048
  7. ACTOS [Concomitant]
     Dosage: NOTE: BEGINNING OF DOSAGE DAY:TRIAL PRENITIATION
     Route: 048
  8. ALENDRONATE SODIUM [Concomitant]
     Route: 048
     Dates: start: 20110710
  9. LOXONIN [Concomitant]
     Dosage: DOSE FORM: TAPE
     Route: 061
     Dates: start: 20110610

REACTIONS (1)
  - ANGINA PECTORIS [None]
